FAERS Safety Report 8716191 (Version 2)
Quarter: 2012Q4

REPORT INFORMATION
  Report Type: Report from Study
  Country: GB (occurrence: GB)
  Receive Date: 20120809
  Receipt Date: 20121105
  Transmission Date: 20130627
  Serious: Yes (Other)
  Sender: FDA-Public Use
  Company Number: GB-UCBSA-063108

PATIENT
  Age: 71 Year
  Sex: Female
  Weight: 54 kg

DRUGS (2)
  1. CERTOLIZUMAB [Suspect]
     Indication: RHEUMATOID ARTHRITIS
     Route: 058
     Dates: start: 20111206, end: 20120131
  2. METHOTREXATE [Concomitant]

REACTIONS (2)
  - Arthritis bacterial [Recovered/Resolved]
  - Cellulitis [Recovered/Resolved]
